FAERS Safety Report 16231686 (Version 1)
Quarter: 2019Q2

REPORT INFORMATION
  Report Type: Spontaneous
  Country: CN (occurrence: CN)
  Receive Date: 20190424
  Receipt Date: 20190424
  Transmission Date: 20190711
  Serious: Yes (Other)
  Sender: FDA-Public Use
  Company Number: CN-ROCHE-2305589

PATIENT
  Age: 47 Year
  Sex: Male

DRUGS (31)
  1. MABTHERA [Suspect]
     Active Substance: RITUXIMAB
     Dosage: ONCE
     Route: 041
     Dates: start: 20170801
  2. MABTHERA [Suspect]
     Active Substance: RITUXIMAB
     Dosage: ON DAY 0
     Route: 041
     Dates: start: 20181221
  3. DEXAMETHASONE. [Concomitant]
     Active Substance: DEXAMETHASONE
     Dosage: FROM DAY 1 TO DAY 3
     Route: 065
     Dates: start: 20170316
  4. VINCRISTINE [Concomitant]
     Active Substance: VINCRISTINE
     Dosage: ON DAY 1
     Route: 065
     Dates: start: 20190325
  5. MABTHERA [Suspect]
     Active Substance: RITUXIMAB
     Indication: B-CELL LYMPHOMA STAGE III
     Dosage: ON DAY 1
     Route: 041
     Dates: start: 20161021
  6. MABTHERA [Suspect]
     Active Substance: RITUXIMAB
     Route: 041
     Dates: start: 20181111
  7. CYCLOPHOSPHAMIDE. [Concomitant]
     Active Substance: CYCLOPHOSPHAMIDE
     Indication: B-CELL LYMPHOMA STAGE III
     Dosage: ON DAY 2
     Route: 065
     Dates: start: 20161021
  8. DEXAMETHASONE. [Concomitant]
     Active Substance: DEXAMETHASONE
     Route: 065
     Dates: start: 20181111
  9. METHOTREXATE. [Concomitant]
     Active Substance: METHOTREXATE
     Indication: B-CELL LYMPHOMA STAGE III
     Route: 065
     Dates: start: 20181111
  10. DOXORUBICIN [Concomitant]
     Active Substance: DOXORUBICIN
     Indication: B-CELL LYMPHOMA STAGE III
     Dosage: ON DAY 1
     Route: 065
     Dates: start: 20181221
  11. VINCRISTINE [Concomitant]
     Active Substance: VINCRISTINE
     Indication: B-CELL LYMPHOMA STAGE III
     Dosage: ON DAY 1
     Route: 065
     Dates: start: 20181221
  12. MABTHERA [Suspect]
     Active Substance: RITUXIMAB
     Dosage: ON DAY 0
     Route: 041
     Dates: start: 20170316
  13. MABTHERA [Suspect]
     Active Substance: RITUXIMAB
     Dosage: ON DAY 0
     Route: 041
     Dates: start: 20170316
  14. FLUDARABINE [Concomitant]
     Active Substance: FLUDARABINE PHOSPHATE
     Indication: B-CELL LYMPHOMA STAGE III
     Dosage: 50MG ON DAY 2 AND DAY 3, 40MG ON DAY 4
     Route: 065
     Dates: start: 20161021
  15. BENDAMUSTINE [Concomitant]
     Active Substance: BENDAMUSTINE
     Dosage: FROM DAY 1 TO DAY 2
     Route: 065
     Dates: start: 20180302
  16. IBRUTINIB [Concomitant]
     Active Substance: IBRUTINIB
     Indication: B-CELL LYMPHOMA STAGE III
     Route: 065
     Dates: start: 20180615
  17. CYCLOPHOSPHAMIDE. [Concomitant]
     Active Substance: CYCLOPHOSPHAMIDE
     Dosage: ON DAY 1
     Route: 065
     Dates: start: 20190325
  18. ETOPOSIDE. [Concomitant]
     Active Substance: ETOPOSIDE
     Indication: B-CELL LYMPHOMA STAGE III
     Route: 065
     Dates: start: 20181111
  19. DEXAMETHASONE. [Concomitant]
     Active Substance: DEXAMETHASONE
     Route: 065
     Dates: start: 20180302
  20. PREDNISONE. [Concomitant]
     Active Substance: PREDNISONE
     Dosage: FROM DAY 1 TO DAY 5
     Route: 065
     Dates: start: 20190325
  21. LENALIDOMIDE [Concomitant]
     Active Substance: LENALIDOMIDE
     Dosage: FROM DAY 1 TO DAY 14
     Route: 065
     Dates: start: 20190325
  22. MABTHERA [Suspect]
     Active Substance: RITUXIMAB
     Route: 041
     Dates: start: 20171223, end: 20171225
  23. MABTHERA [Suspect]
     Active Substance: RITUXIMAB
     Dosage: ON DAY 0
     Route: 041
     Dates: start: 20180302
  24. DEXAMETHASONE. [Concomitant]
     Active Substance: DEXAMETHASONE
     Indication: B-CELL LYMPHOMA STAGE III
     Dosage: FROM DAY 2 TO DAY 4
     Route: 065
     Dates: start: 20161021
  25. IFOSFAMIDE. [Concomitant]
     Active Substance: IFOSFAMIDE
     Indication: B-CELL LYMPHOMA STAGE III
     Route: 065
     Dates: start: 20181111
  26. DOXORUBICIN [Concomitant]
     Active Substance: DOXORUBICIN
     Dosage: ON DAY 1
     Route: 065
     Dates: start: 20190325
  27. LENALIDOMIDE [Concomitant]
     Active Substance: LENALIDOMIDE
     Indication: B-CELL LYMPHOMA STAGE III
     Dosage: FROM DAY 1 TO DAY 14
     Route: 065
     Dates: start: 20181221
  28. CYCLOPHOSPHAMIDE. [Concomitant]
     Active Substance: CYCLOPHOSPHAMIDE
     Dosage: ON DAY 1
     Route: 065
     Dates: start: 20181221
  29. BENDAMUSTINE [Concomitant]
     Active Substance: BENDAMUSTINE
     Indication: B-CELL LYMPHOMA STAGE III
     Dosage: FROM DAY 1 TO DAY 2
     Route: 065
     Dates: start: 20170316
  30. BENDAMUSTINE [Concomitant]
     Active Substance: BENDAMUSTINE
     Route: 065
     Dates: start: 20171223, end: 20171225
  31. PREDNISONE. [Concomitant]
     Active Substance: PREDNISONE
     Indication: B-CELL LYMPHOMA STAGE III
     Dosage: FROM DAY 1 TO DAY 5
     Route: 065
     Dates: start: 20181221

REACTIONS (14)
  - Hepatic cyst [Unknown]
  - Necrotising retinitis [Unknown]
  - Sinusitis [Unknown]
  - Spinal disorder [Unknown]
  - Steroid diabetes [Unknown]
  - Pneumonitis [Recovering/Resolving]
  - Pericardial effusion [Recovering/Resolving]
  - Pleural effusion [Unknown]
  - Anaemia [Unknown]
  - Uveitis [Unknown]
  - Pulmonary granuloma [Unknown]
  - Sinusitis [Unknown]
  - Renal cyst [Unknown]
  - Intra-abdominal fluid collection [Recovering/Resolving]

NARRATIVE: CASE EVENT DATE: 2017
